FAERS Safety Report 15904804 (Version 2)
Quarter: 2019Q1

REPORT INFORMATION
  Report Type: Report from Study
  Country: US (occurrence: US)
  Receive Date: 20190204
  Receipt Date: 20190314
  Transmission Date: 20190417
  Serious: Yes (Hospitalization, Other)
  Sender: FDA-Public Use
  Company Number: US-ROCHE-2252537

PATIENT
  Sex: Female
  Weight: 108.41 kg

DRUGS (10)
  1. MIRAPEX [Concomitant]
     Active Substance: PRAMIPEXOLE DIHYDROCHLORIDE
     Route: 048
  2. XARELTO [Concomitant]
     Active Substance: RIVAROXABAN
     Dosage: DAILY
     Route: 048
  3. ENBREL [Concomitant]
     Active Substance: ETANERCEPT
     Route: 065
  4. CELLCEPT [Suspect]
     Active Substance: MYCOPHENOLATE MOFETIL\MYCOPHENOLATE MOFETIL HYDROCHLORIDE
     Indication: CONNECTIVE TISSUE DISORDER
  5. DELTASONE (PREDNISONE) [Concomitant]
     Dosage: DAILY
     Route: 048
  6. CELLCEPT [Suspect]
     Active Substance: MYCOPHENOLATE MOFETIL\MYCOPHENOLATE MOFETIL HYDROCHLORIDE
     Indication: INTERSTITIAL LUNG DISEASE
     Dosage: 3 TABS BID
     Route: 048
  7. CELLCEPT [Suspect]
     Active Substance: MYCOPHENOLATE MOFETIL\MYCOPHENOLATE MOFETIL HYDROCHLORIDE
     Indication: INTERSTITIAL LUNG DISEASE
     Dosage: 2 CAPS FOR 2X A DAY FOR 7 DAY;4 TABS BID THERAFTER
     Route: 048
     Dates: start: 20190109
  8. SINEQUAN [Concomitant]
     Active Substance: DOXEPIN HYDROCHLORIDE
     Route: 065
  9. CLONAZEPAM. [Suspect]
     Active Substance: CLONAZEPAM
     Indication: ANXIETY
     Route: 048
  10. LEVOTHYROXINE. [Concomitant]
     Active Substance: LEVOTHYROXINE
     Dosage: 125MCG DAILY
     Route: 048

REACTIONS (19)
  - Intentional product use issue [Unknown]
  - Urinary tract infection [Unknown]
  - Obesity [Unknown]
  - Rales [Unknown]
  - Chest pain [Unknown]
  - Dyspnoea exertional [Unknown]
  - Dry mouth [Unknown]
  - Tinnitus [Unknown]
  - Deafness [Unknown]
  - Fatigue [Unknown]
  - Dyspnoea [Unknown]
  - Hand deformity [Unknown]
  - Haematuria [Unknown]
  - Arthralgia [Unknown]
  - Asthenia [Unknown]
  - Hypoxia [Unknown]
  - Joint swelling [Unknown]
  - Scan abnormal [Unknown]
  - Off label use [Unknown]
